FAERS Safety Report 15449470 (Version 1)
Quarter: 2018Q4

REPORT INFORMATION
  Report Type: Spontaneous
  Country: US (occurrence: US)
  Receive Date: 20181001
  Receipt Date: 20181001
  Transmission Date: 20190204
  Serious: No
  Sender: FDA-Public Use
  Company Number: US-BIOGEN-2016BI00243417

PATIENT
  Age: 51 Year
  Sex: Female

DRUGS (1)
  1. AVONEX [Suspect]
     Active Substance: INTERFERON BETA-1A
     Indication: MULTIPLE SCLEROSIS
     Route: 030
     Dates: start: 2001

REACTIONS (11)
  - CSF test abnormal [Unknown]
  - Influenza [Recovered/Resolved]
  - Injection site scar [Recovered/Resolved]
  - Central nervous system lesion [Unknown]
  - Injection site reaction [Recovered/Resolved]
  - Nerve injury [Unknown]
  - Pneumonia [Recovered/Resolved]
  - Lumbar puncture [Unknown]
  - Migraine [Not Recovered/Not Resolved]
  - Insomnia [Not Recovered/Not Resolved]
  - Malaise [Not Recovered/Not Resolved]

NARRATIVE: CASE EVENT DATE: 2001
